FAERS Safety Report 5935322-6 (Version None)
Quarter: 2008Q4

REPORT INFORMATION
  Report Type: 
  Country: None (occurrence: None)
  Receive Date: 20081030
  Receipt Date: 20081029
  Transmission Date: 20090506
  Serious: Yes (Other)
  Sender: FDA-Public Use
  Company Number: AR-BRISTOL-MYERS SQUIBB COMPANY-14388151

PATIENT
  Age: 55 Year

DRUGS (1)
  1. REYATAZ [Suspect]

REACTIONS (3)
  - CHOLELITHIASIS [None]
  - NEPHROLITHIASIS [None]
  - RENAL FAILURE ACUTE [None]
